FAERS Safety Report 25132780 (Version 1)
Quarter: 2025Q1

REPORT INFORMATION
  Report Type: Spontaneous
  Country: FR (occurrence: FR)
  Receive Date: 20250328
  Receipt Date: 20250328
  Transmission Date: 20250409
  Serious: Yes (Hospitalization, Other)
  Sender: BRISTOL-MYERS SQUIBB COMPANY
  Company Number: None

PATIENT
  Age: 59 Year
  Sex: Male
  Weight: 71.5 kg

DRUGS (2)
  1. YERVOY [Suspect]
     Active Substance: IPILIMUMAB
     Indication: Desmoplastic melanoma
     Route: 042
     Dates: start: 20241230, end: 20250210
  2. OPDIVO [Suspect]
     Active Substance: NIVOLUMAB
     Indication: Desmoplastic melanoma
     Route: 042
     Dates: start: 20241230, end: 20250210

REACTIONS (4)
  - Hepatitis cholestatic [Recovering/Resolving]
  - Adrenal insufficiency [Recovering/Resolving]
  - Hypothyroidism [Recovering/Resolving]
  - Off label use [Unknown]

NARRATIVE: CASE EVENT DATE: 20250225
